FAERS Safety Report 4854805-3 (Version None)
Quarter: 2005Q4

REPORT INFORMATION
  Report Type: 
  Country: None (occurrence: None)
  Receive Date: 20051214
  Receipt Date: 20051214
  Transmission Date: 20060501
  Serious: Yes (Other)
  Sender: FDA-Public Use
  Company Number: None

PATIENT
  Age: 25 Year
  Sex: Male
  Weight: 83.0083 kg

DRUGS (3)
  1. ACCUTANE [Suspect]
     Indication: ACNE
     Dosage: -TABLET
     Dates: start: 19980601
  2. PREDNISONE TAB [Concomitant]
  3. SULFASALAZINE [Concomitant]

REACTIONS (2)
  - COLITIS ULCERATIVE [None]
  - HAEMORRHAGE [None]
